FAERS Safety Report 5634564-7 (Version None)
Quarter: 2008Q1

REPORT INFORMATION
  Report Type: 
  Country: None (occurrence: None)
  Receive Date: 20080222
  Receipt Date: 20080218
  Transmission Date: 20080703
  Serious: Yes (Death)
  Sender: FDA-Public Use
  Company Number: PHBS2008IT02336

PATIENT
  Sex: Male

DRUGS (1)
  1. SANDIMMUNE [Suspect]
     Indication: PARAPSORIASIS

REACTIONS (1)
  - DEATH [None]
